FAERS Safety Report 19145362 (Version 3)
Quarter: 2025Q1

REPORT INFORMATION
  Report Type: Spontaneous
  Country: US (occurrence: US)
  Receive Date: 20210416
  Receipt Date: 20250128
  Transmission Date: 20250409
  Serious: Yes (Congenital Anomaly, Other)
  Sender: VERTEX
  Company Number: US-VERTEX PHARMACEUTICALS-2021-005619

PATIENT
  Age: 0 Year
  Sex: Male
  Weight: 7 kg

DRUGS (21)
  1. TRIKAFTA [Suspect]
     Active Substance: ELEXACAFTOR\IVACAFTOR\TEZACAFTOR
     Indication: Cystic fibrosis
     Dosage: 2 TABS (100MG ELEXA/ 50MG TEZA /IVA 75MG IVA) AM; 1 TAB (150MG IVA) PM
     Route: 048
     Dates: start: 20200108, end: 2020
  2. TRIKAFTA [Suspect]
     Active Substance: ELEXACAFTOR\IVACAFTOR\TEZACAFTOR
     Route: 048
     Dates: start: 20200727
  3. CAYSTON [Concomitant]
     Active Substance: AZTREONAM
     Indication: Pseudomonas infection
     Dosage: 1 ML
     Dates: start: 2020
  4. URSODIOL [Concomitant]
     Active Substance: URSODIOL
     Indication: Cholestasis
     Dosage: 2 TABLETS
     Route: 048
     Dates: start: 20201123, end: 20210216
  5. ALBUTEROL [Concomitant]
     Active Substance: ALBUTEROL
     Indication: Obstructive airways disorder
     Dosage: 2.5 MG/3ML, 1 VIAL BID
     Dates: start: 2020
  6. SODIUM CHLORIDE [Concomitant]
     Active Substance: SODIUM CHLORIDE
     Indication: Obstructive airways disorder
     Dosage: 1 VIAL (4 ML) BID
     Dates: start: 2020
  7. PULMOZYME [Concomitant]
     Active Substance: DORNASE ALFA
     Indication: Obstructive airways disorder
     Dosage: 1 VIAL (2.5 MG) BID
  8. FLUTICASONE [Concomitant]
     Active Substance: FLUTICASONE
     Indication: Hypersensitivity
     Dosage: 1 SPRAY IN EACH NOSTRIL QD
     Route: 045
  9. CETIRIZINE [Concomitant]
     Active Substance: CETIRIZINE HYDROCHLORIDE
     Indication: Hypersensitivity
     Dosage: 1 TABLET 10MG, DAILY
     Route: 048
     Dates: start: 2020
  10. CREON [Concomitant]
     Active Substance: PANCRELIPASE AMYLASE\PANCRELIPASE LIPASE\PANCRELIPASE PROTEASE
     Indication: Pancreatic failure
     Route: 048
     Dates: start: 2020
  11. CHOLECALCIFEROL [Concomitant]
     Active Substance: CHOLECALCIFEROL
     Indication: Vitamin supplementation
     Route: 048
  12. VITAMINS [Concomitant]
     Active Substance: VITAMINS
     Indication: Pregnancy
     Dosage: 1 TABLET
     Route: 048
  13. INSULIN GLARGINE [Concomitant]
     Active Substance: INSULIN GLARGINE
     Indication: Cystic fibrosis related diabetes
     Dosage: 8 UNITS, DAILY
     Route: 058
     Dates: start: 2020
  14. INSULIN ASPART [Concomitant]
     Active Substance: INSULIN ASPART
     Indication: Cystic fibrosis related diabetes
     Route: 058
     Dates: start: 2020
  15. VALTREX [Concomitant]
     Active Substance: VALACYCLOVIR HYDROCHLORIDE
     Indication: Genital herpes
     Dosage: 500 MG, BID
     Route: 048
     Dates: start: 20200804, end: 20210121
  16. VALTREX [Concomitant]
     Active Substance: VALACYCLOVIR HYDROCHLORIDE
     Indication: Prophylaxis
     Dosage: 500 MG, BID
     Route: 048
     Dates: start: 20210121, end: 20210302
  17. DORNASE ALFA [Concomitant]
     Active Substance: DORNASE ALFA
     Dosage: 2.5 MG, BID
  18. AZTREONAM [Concomitant]
     Active Substance: AZTREONAM
     Dosage: 75 MG, TID
  19. VITAMIN D3 [Concomitant]
     Active Substance: CHOLECALCIFEROL
     Indication: Pancreatic failure
     Route: 048
  20. FLONASE [Concomitant]
     Active Substance: FLUTICASONE PROPIONATE
     Indication: Hypersensitivity
  21. MINERALS\VITAMINS [Concomitant]
     Active Substance: MINERALS\VITAMINS
     Dosage: 1 CAPSULE, TWICE DAILY
     Route: 048

REACTIONS (1)
  - Neonatal hypoacusis [Recovering/Resolving]

NARRATIVE: CASE EVENT DATE: 20210216
